FAERS Safety Report 9389059 (Version 3)
Quarter: 2013Q3

REPORT INFORMATION
  Report Type: Spontaneous
  Country: CO (occurrence: CO)
  Receive Date: 20130708
  Receipt Date: 20130729
  Transmission Date: 20140515
  Serious: Yes (Other)
  Sender: FDA-Public Use
  Company Number: PHHY2013CO071764

PATIENT
  Sex: Female

DRUGS (7)
  1. ACLASTA [Suspect]
     Dosage: UNK
     Route: 042
  2. ACLASTA [Suspect]
     Dosage: UNK
     Route: 042
  3. ACLASTA [Suspect]
     Dosage: UNK
     Route: 042
  4. EUTIROX [Concomitant]
     Dosage: 75 MG, SINCE FIVE YEARS
  5. OMEGA 3 [Concomitant]
     Dosage: UNK UKN, UNK
  6. CALCIUM [Concomitant]
     Dosage: UNK UKN, UNK
  7. VITAMIN D [Concomitant]
     Dosage: UNK

REACTIONS (9)
  - Bursitis [Recovered/Resolved]
  - Inflammation [Recovered/Resolved]
  - Inflammatory pain [Recovered/Resolved]
  - Gait disturbance [Recovered/Resolved]
  - Influenza [Recovered/Resolved]
  - Gastrooesophageal reflux disease [Recovered/Resolved]
  - Gastritis [Recovered/Resolved]
  - Nasopharyngitis [Recovered/Resolved]
  - Vomiting [Recovered/Resolved]
